FAERS Safety Report 8090615-4 (Version None)
Quarter: 2012Q1

REPORT INFORMATION
  Report Type: 
  Country: None (occurrence: None)
  Receive Date: 20120129
  Receipt Date: 20111205
  Transmission Date: 20120608
  Serious: No
  Sender: FDA-Public Use
  Company Number: US-ABBOTT-11P-163-0873971-00

PATIENT
  Age: 46 Year
  Sex: Male

DRUGS (4)
  1. HUMIRA [Suspect]
     Indication: CROHN'S DISEASE
     Dates: start: 20110823, end: 20111115
  2. HUMIRA [Suspect]
     Dates: start: 20111203
  3. LOVASTATIN [Concomitant]
     Indication: BLOOD CHOLESTEROL INCREASED
     Dosage: DAILY
  4. NORCO [Concomitant]
     Indication: PAIN
     Dosage: 10MG UP TO 70MG PRN

REACTIONS (6)
  - BRONCHITIS [None]
  - TOOTH EXTRACTION [None]
  - TOOTH ABSCESS [None]
  - SINUS HEADACHE [None]
  - OROPHARYNGEAL PAIN [None]
  - COUGH [None]
